FAERS Safety Report 16905502 (Version 1)
Quarter: 2019Q4

REPORT INFORMATION
  Report Type: Spontaneous
  Country: GB (occurrence: GB)
  Receive Date: 20191010
  Receipt Date: 20191010
  Transmission Date: 20200122
  Serious: Yes (Life-Threatening, Hospitalization, Other)
  Sender: FDA-Public Use
  Company Number: GB-JNJFOC-20191002183

PATIENT
  Age: 77 Year
  Sex: Male
  Weight: 79 kg

DRUGS (11)
  1. CLOBETASONE BUTYRATE [Concomitant]
     Active Substance: CLOBETASONE BUTYRATE
  2. PARACETAMOL [Concomitant]
     Active Substance: ACETAMINOPHEN
  3. DERMOL                             /01330701/ [Concomitant]
     Route: 065
  4. BETNOVATE [Concomitant]
     Active Substance: BETAMETHASONE
     Route: 065
  5. MACROGOL 3350 [Concomitant]
     Active Substance: POLYETHYLENE GLYCOL 3350
     Route: 065
  6. FERROUS FUMARATE [Concomitant]
     Active Substance: FERROUS FUMARATE
  7. DALTEPARIN [Concomitant]
     Active Substance: DALTEPARIN
     Route: 065
  8. STELARA [Suspect]
     Active Substance: USTEKINUMAB
     Indication: PSORIASIS
     Route: 058
     Dates: start: 20121104, end: 20190901
  9. MIRTAZAPINE. [Concomitant]
     Active Substance: MIRTAZAPINE
  10. OXYCODONE [Concomitant]
     Active Substance: OXYCODONE
  11. FEXOFENADINE [Concomitant]
     Active Substance: FEXOFENADINE HYDROCHLORIDE

REACTIONS (3)
  - Chills [Unknown]
  - Immunosuppression [Not Recovered/Not Resolved]
  - Staphylococcal bacteraemia [Not Recovered/Not Resolved]
